FAERS Safety Report 10589297 (Version 3)
Quarter: 2015Q2

REPORT INFORMATION
  Report Type: Spontaneous
  Country: US (occurrence: US)
  Receive Date: 20141118
  Receipt Date: 20150525
  Transmission Date: 20150821
  Serious: Yes (Other)
  Sender: FDA-Public Use
  Company Number: US-JNJFOC-20141108501

PATIENT
  Age: 49 Year
  Sex: Female
  Weight: 143 kg

DRUGS (17)
  1. IBUPROFEN. [Suspect]
     Active Substance: IBUPROFEN
     Indication: PRODUCT USED FOR UNKNOWN INDICATION
     Dosage: 800 MG IN THE MORNING AND 1200
     Route: 065
  2. DEMADEX [Suspect]
     Active Substance: TORSEMIDE
     Indication: OEDEMA
     Route: 065
  3. SIMVASTATIN. [Suspect]
     Active Substance: SIMVASTATIN
     Indication: BLOOD CHOLESTEROL INCREASED
     Dosage: 40 MG, UNK
     Route: 065
  4. FENTANYL. [Suspect]
     Active Substance: FENTANYL
     Indication: PAIN
     Dosage: 50 MICROGRAM, EVERY 48 HOURS
     Route: 065
  5. VALIUM [Suspect]
     Active Substance: DIAZEPAM
     Indication: ANXIETY
     Route: 065
  6. SEROQUEL [Suspect]
     Active Substance: QUETIAPINE FUMARATE
     Indication: ANXIETY
     Dosage: 50 MG TWICE DAILY IN THE MORNING AND NOON
     Route: 065
  7. METFORMIN HCL [Suspect]
     Active Substance: METFORMIN HYDROCHLORIDE
     Indication: TYPE 2 DIABETES MELLITUS
     Route: 065
  8. ASPIRIN. [Suspect]
     Active Substance: ASPIRIN
     Indication: PRODUCT USED FOR UNKNOWN INDICATION
     Dosage: 162 MG, 1 TIME PER DAY (81MG, 2 TABLETS AT NIGHT)
     Route: 065
  9. LYRICA [Suspect]
     Active Substance: PREGABALIN
     Indication: FIBROMYALGIA
     Route: 065
     Dates: start: 2006
  10. TOPAMAX [Suspect]
     Active Substance: TOPIRAMATE
     Indication: APPETITE DISORDER
     Dosage: 100 MG, DAILY (DAILY IN THE MORNING)
     Route: 065
  11. SEROQUEL [Suspect]
     Active Substance: QUETIAPINE FUMARATE
     Indication: SLEEP DISORDER
     Dosage: 50 MG TWICE DAILY IN THE MORNING AND NOON
     Route: 065
  12. SEROQUEL [Suspect]
     Active Substance: QUETIAPINE FUMARATE
     Indication: ANXIETY
     Dosage: 200 MG AT NIGHT, UNK, UNK, 3 TIMES PER DAY
     Route: 065
  13. LEXAPRO [Suspect]
     Active Substance: ESCITALOPRAM OXALATE
     Indication: DEPRESSION
     Route: 065
  14. EFFEXOR XR [Suspect]
     Active Substance: VENLAFAXINE HYDROCHLORIDE
     Indication: DEPRESSION
     Dosage: 225 MG, DAILY (75MG CAPSULE AND A 150MG CAPSULE TOGETHER)
     Route: 065
  15. TIZANIDINE (TIZANIDINE) [Suspect]
     Active Substance: TIZANIDINE
     Indication: MUSCLE SPASMS
     Route: 065
  16. OXYCODONE PARACETAMOL [Suspect]
     Active Substance: ACETAMINOPHEN\OXYCODONE HYDROCHLORIDE
     Indication: PAIN
     Dosage: 10/325 MG, 1 OF THEM 3 TIMES DAILY, AS NEEDED
     Route: 065
  17. SEROQUEL [Suspect]
     Active Substance: QUETIAPINE FUMARATE
     Indication: SLEEP DISORDER
     Dosage: 200 MG AT NIGHT, UNK, UNK, 3 TIMES PER DAY
     Route: 065

REACTIONS (5)
  - Oropharyngeal pain [Not Recovered/Not Resolved]
  - Visual acuity reduced [Unknown]
  - Dry mouth [Not Recovered/Not Resolved]
  - Type 2 diabetes mellitus [Not Recovered/Not Resolved]
  - Blood cholesterol increased [Not Recovered/Not Resolved]

NARRATIVE: CASE EVENT DATE: 2013
